FAERS Safety Report 8246987-0 (Version None)
Quarter: 2012Q1

REPORT INFORMATION
  Report Type: 
  Country: None (occurrence: None)
  Receive Date: 20120330
  Receipt Date: 20120323
  Transmission Date: 20120608
  Serious: Yes (Hospitalization, Disabling, Other)
  Sender: FDA-Public Use
  Company Number: JP-JNJFOC-20111200836

PATIENT
  Sex: Female
  Weight: 53 kg

DRUGS (16)
  1. TRAMADOL HYDROCHLORIDE/ACETAMINOPHEN [Suspect]
     Dosage: 2 DOSES 1 PER 1 DAY
     Route: 048
     Dates: start: 20110826, end: 20111112
  2. JANUVIA [Concomitant]
     Indication: DIABETES MELLITUS
     Route: 048
     Dates: start: 20111027, end: 20111110
  3. YOKUKAN-SAN [Concomitant]
     Dosage: 7.58 DF PER DAY
     Route: 048
  4. PHENOBARBITAL [Concomitant]
     Dosage: 0.38 DF PER DAY
     Route: 065
  5. MAGNESIUM OXIDE [Concomitant]
     Indication: CONSTIPATION
     Route: 048
  6. TRAMADOL HYDROCHLORIDE/ACETAMINOPHEN [Suspect]
     Indication: PAIN
     Route: 048
     Dates: start: 20111113, end: 20111126
  7. DICLOFENAC SODIUM [Concomitant]
     Indication: PAIN
     Route: 054
  8. DOMPERIDONE [Concomitant]
     Indication: NAUSEA
     Route: 048
     Dates: start: 20110826, end: 20111126
  9. LOBU [Concomitant]
     Indication: PAIN
     Route: 048
  10. PLATIBIT [Concomitant]
     Indication: OSTEOPOROSIS
     Route: 048
  11. UNKNOWN MEDICATION [Concomitant]
     Indication: SPINAL OSTEOARTHRITIS
     Route: 061
  12. DEPAS [Concomitant]
     Route: 048
  13. VOLTAREN [Concomitant]
     Route: 054
  14. LIVALO [Concomitant]
     Indication: HYPERLIPIDAEMIA
     Route: 048
  15. LYRICA [Concomitant]
     Indication: PAIN
     Route: 048
     Dates: start: 20110803, end: 20110810
  16. RISEDRONATE SODIUM [Concomitant]
     Indication: OSTEOPOROSIS
     Route: 048

REACTIONS (1)
  - DIABETES MELLITUS [None]
